FAERS Safety Report 15410744 (Version 1)
Quarter: 2018Q3

REPORT INFORMATION
  Report Type: Spontaneous
  Country: US (occurrence: US)
  Receive Date: 20180919
  Receipt Date: 20180919
  Transmission Date: 20181010
  Serious: Yes (Other)
  Sender: FDA-Public Use
  Company Number: None

PATIENT
  Age: 71 Year
  Sex: Female
  Weight: 86.4 kg

DRUGS (21)
  1. ALENDRONATE [Concomitant]
     Active Substance: ALENDRONATE SODIUM
  2. PRAVASTATIN. [Concomitant]
     Active Substance: PRAVASTATIN
  3. LASIX [Concomitant]
     Active Substance: FUROSEMIDE
  4. CARBOPLATIN. [Suspect]
     Active Substance: CARBOPLATIN
     Indication: LUNG NEOPLASM MALIGNANT
     Route: 042
     Dates: start: 20180820, end: 20180919
  5. ENALAPRIL [Concomitant]
     Active Substance: ENALAPRIL
  6. GABAPENTIN. [Concomitant]
     Active Substance: GABAPENTIN
  7. LATANOPROST. [Concomitant]
     Active Substance: LATANOPROST
  8. LEVEMIR [Concomitant]
     Active Substance: INSULIN DETEMIR
  9. PREDNISONE. [Concomitant]
     Active Substance: PREDNISONE
  10. HYDROCODONE?APAP [Concomitant]
     Active Substance: ACETAMINOPHEN\HYDROCODONE
  11. LEVOTHYROXINE. [Concomitant]
     Active Substance: LEVOTHYROXINE
  12. POTASSIUM CHLORIDE. [Concomitant]
     Active Substance: POTASSIUM CHLORIDE
  13. CLOPIDOGREL [Concomitant]
     Active Substance: CLOPIDOGREL BISULFATE
  14. NOVOLOG [Concomitant]
     Active Substance: INSULIN ASPART
  15. TECENTRIQ [Suspect]
     Active Substance: ATEZOLIZUMAB
     Indication: LUNG NEOPLASM MALIGNANT
     Route: 042
     Dates: start: 20180306, end: 20180919
  16. ONDANSETRON [Concomitant]
     Active Substance: ONDANSETRON
  17. PROMETHAZINE [Concomitant]
     Active Substance: PROMETHAZINE\PROMETHAZINE HYDROCHLORIDE
  18. VITAMIN E [Concomitant]
     Active Substance: .ALPHA.-TOCOPHEROL
  19. ALBUTEROL. [Concomitant]
     Active Substance: ALBUTEROL
  20. NEXIUM [Concomitant]
     Active Substance: ESOMEPRAZOLE MAGNESIUM
  21. VITAMIN D3 [Concomitant]
     Active Substance: CHOLECALCIFEROL

REACTIONS (1)
  - Disease progression [None]
